FAERS Safety Report 5670130-5 (Version None)
Quarter: 2008Q1

REPORT INFORMATION
  Report Type: 
  Country: None (occurrence: None)
  Receive Date: 20080312
  Receipt Date: 20080305
  Transmission Date: 20080703
  Serious: Yes (Death, Hospitalization, Other)
  Sender: FDA-Public Use
  Company Number: 144-C5013-08010597

PATIENT
  Age: 66 Year
  Sex: Male

DRUGS (2)
  1. CC-5013 (LENALIDOMIDE)        (CAPSULES) [Suspect]
     Indication: MYELOFIBROSIS
     Dosage: 5 MG, DAILY, ORAL
     Route: 048
     Dates: start: 20071001, end: 20080201
  2. EXJADE [Concomitant]

REACTIONS (7)
  - ANOREXIA [None]
  - ASTHENIA [None]
  - DISEASE PROGRESSION [None]
  - DRY MOUTH [None]
  - INSOMNIA [None]
  - PNEUMONIA [None]
  - THROMBOCYTOPENIA [None]
